FAERS Safety Report 5043728-5 (Version None)
Quarter: 2006Q3

REPORT INFORMATION
  Report Type: 
  Country: None (occurrence: None)
  Receive Date: 20060706
  Receipt Date: 20060612
  Transmission Date: 20061208
  Serious: Yes (Other)
  Sender: FDA-Public Use
  Company Number: PHNU2006DE02244

PATIENT
  Sex: Female

DRUGS (1)
  1. DESFERAL [Suspect]
     Indication: THALASSAEMIA
     Dosage: UNK, UNK
     Route: 058
     Dates: start: 19810101

REACTIONS (1)
  - PARESIS [None]
